APPROVED DRUG PRODUCT: CINVANTI
Active Ingredient: APREPITANT
Strength: 130MG/18ML (7.2MG/ML)
Dosage Form/Route: EMULSION;INTRAVENOUS
Application: N209296 | Product #001
Applicant: HERON THERAPEUTICS INC
Approved: Nov 9, 2017 | RLD: Yes | RS: Yes | Type: RX

PATENTS:
Patent 9808465 | Expires: Sep 18, 2035
Patent 10953018 | Expires: Sep 18, 2035
Patent 9974794 | Expires: Sep 18, 2035
Patent 9561229 | Expires: Sep 18, 2035
Patent 10624850 | Expires: Sep 18, 2035
Patent 12115254 | Expires: Sep 18, 2035
Patent 9974793 | Expires: Sep 18, 2035
Patent 9974742 | Expires: Sep 18, 2035
Patent 12115255 | Expires: Sep 18, 2035
Patent 11173118 | Expires: Sep 18, 2035
Patent 12290520 | Expires: Sep 18, 2035
Patent 10500208 | Expires: Sep 18, 2035
Patent 11744800 | Expires: Sep 18, 2035